FAERS Safety Report 9580276 (Version 1)
Quarter: 2013Q3

REPORT INFORMATION
  Report Type: Spontaneous
  Country: US (occurrence: None)
  Receive Date: 20130916
  Receipt Date: 20130916
  Transmission Date: 20140515
  Serious: Yes (Other)
  Sender: FDA-Public Use
  Company Number: JPI-P-029645

PATIENT
  Age: 46 Year
  Sex: Female
  Weight: 78.93 kg

DRUGS (5)
  1. XYREM [Suspect]
     Indication: NARCOLEPSY
     Route: 048
     Dates: start: 20121105, end: 20130116
  2. XYREM [Suspect]
     Indication: SOMNOLENCE
     Route: 048
     Dates: start: 20121105, end: 20130116
  3. ARMODAFINIL [Concomitant]
  4. RABEPRAZOLE SODIUM [Concomitant]
  5. METFORMIN [Concomitant]

REACTIONS (4)
  - Diarrhoea [None]
  - Weight decreased [None]
  - Dysgeusia [None]
  - Middle insomnia [None]
